FAERS Safety Report 6558756-8 (Version None)
Quarter: 2010Q1

REPORT INFORMATION
  Report Type: 
  Country: None (occurrence: None)
  Receive Date: 20100129
  Receipt Date: 20100122
  Transmission Date: 20100710
  Serious: Yes (Life-Threatening, Hospitalization, Disabling, Other)
  Sender: FDA-Public Use
  Company Number: DE-ABBOTT-09P-062-0500289-00

PATIENT
  Age: 29 Year
  Sex: Female
  Weight: 36 kg

DRUGS (19)
  1. HUMIRA [Suspect]
     Indication: JUVENILE ARTHRITIS
     Route: 058
     Dates: start: 20060101, end: 20090101
  2. HUMIRA [Suspect]
     Route: 058
     Dates: start: 20061101, end: 20090101
  3. ENBREL [Concomitant]
     Indication: RHEUMATOID ARTHRITIS
     Dates: start: 20011109, end: 20060101
  4. METHYLPREDNISOLONE [Concomitant]
     Indication: RHEUMATOID ARTHRITIS
     Route: 048
  5. METHOTREXATE [Concomitant]
     Indication: RHEUMATOID ARTHRITIS
     Dates: end: 20011101
  6. LORZAAR [Concomitant]
     Indication: HYPERTENSION
     Dosage: 25 MG DAILY
     Route: 048
  7. BISOPROLOL FUMARATE [Concomitant]
     Indication: HYPERTENSION
     Route: 048
  8. OMEPRAZOLE [Concomitant]
     Indication: DRUG USE FOR UNKNOWN INDICATION
  9. ONE ALPHA VITAMIN D [Concomitant]
     Indication: HYPERPARATHYROIDISM SECONDARY
     Route: 048
  10. SIMVASTATIN [Concomitant]
     Indication: HYPERCHOLESTEROLAEMIA
     Route: 048
  11. LEVOTHYROXINE SODIUM [Concomitant]
     Indication: HYPOTHYROIDISM
     Dosage: 25 MCG AND 50 MCG EVERY OTHER DAY
  12. CALCIUM ACETATE [Concomitant]
     Indication: HYPERPHOSPHATAEMIA
     Route: 048
  13. PROGRAF [Concomitant]
     Indication: IMMUNOSUPPRESSION
     Dosage: 1.5 MG + 1 MG DAILY
  14. DECORTIN H [Concomitant]
     Indication: DRUG USE FOR UNKNOWN INDICATION
     Dosage: 5 MG DAILY
  15. CELLCEPT [Concomitant]
     Indication: IMMUNOSUPPRESSANT DRUG THERAPY
  16. CONCOR [Concomitant]
     Indication: DRUG USE FOR UNKNOWN INDICATION
  17. VALCYTE [Concomitant]
     Indication: DRUG USE FOR UNKNOWN INDICATION
     Dosage: 450 MG DAILY
  18. MAGNESIUM [Concomitant]
     Indication: DRUG USE FOR UNKNOWN INDICATION
  19. COTRIM [Concomitant]
     Indication: ANTIBIOTIC THERAPY

REACTIONS (3)
  - DYSPNOEA [None]
  - RENAL FAILURE [None]
  - RENAL TRANSPLANT [None]
